FAERS Safety Report 15849573 (Version 2)
Quarter: 2019Q1

REPORT INFORMATION
  Report Type: Report from Study
  Country: PL (occurrence: PL)
  Receive Date: 20190121
  Receipt Date: 20190222
  Transmission Date: 20190417
  Serious: Yes (Other)
  Sender: FDA-Public Use
  Company Number: PL-ASTRAZENECA-2019SE12484

PATIENT
  Sex: Male

DRUGS (3)
  1. QUETIAPINE. [Suspect]
     Active Substance: QUETIAPINE
     Route: 048
  2. SULPRIDE [Interacting]
     Active Substance: SULPIRIDE
     Route: 065
  3. RHODIOLA ROSEA [Interacting]
     Active Substance: HERBALS
     Route: 065

REACTIONS (2)
  - Drug interaction [Unknown]
  - Priapism [Unknown]
